FAERS Safety Report 17659712 (Version 1)
Quarter: 2020Q2

REPORT INFORMATION
  Report Type: Spontaneous
  Country: CA (occurrence: CA)
  Receive Date: 20200413
  Receipt Date: 20200413
  Transmission Date: 20200713
  Serious: Yes (Hospitalization, Other)
  Sender: FDA-Public Use
  Company Number: CA-TEVA-2020-CA-1222071

PATIENT
  Age: 21 Year
  Sex: Male

DRUGS (4)
  1. PFIZER CALCIUM/VITAMIN D, [Concomitant]
     Route: 065
  2. IRON [Concomitant]
     Active Substance: IRON
     Route: 065
  3. PREDNISONE. [Suspect]
     Active Substance: PREDNISONE
     Dosage: PREDNISONE 45 MG/DAY TAPERING TO 25 MG DAY: FAILURE
     Route: 065
     Dates: start: 201911
  4. XELJANZ [Concomitant]
     Active Substance: TOFACITINIB CITRATE
     Indication: COLITIS ULCERATIVE
     Dosage: 20 MILLIGRAM DAILY;
     Route: 048
     Dates: start: 20200324

REACTIONS (25)
  - Haematochezia [Not Recovered/Not Resolved]
  - Diarrhoea haemorrhagic [Not Recovered/Not Resolved]
  - Treatment failure [Unknown]
  - Weight decreased [Unknown]
  - Dizziness [Unknown]
  - Colitis ulcerative [Unknown]
  - Drug dependence [Unknown]
  - Malaise [Unknown]
  - Frequent bowel movements [Unknown]
  - Abdominal pain [Not Recovered/Not Resolved]
  - Myalgia [Unknown]
  - Aphthous ulcer [Unknown]
  - Blood pressure increased [Unknown]
  - Colitis [Unknown]
  - Rectal haemorrhage [Not Recovered/Not Resolved]
  - Dizziness postural [Unknown]
  - Procedural pain [Unknown]
  - Gastrointestinal haemorrhage [Unknown]
  - Anaemia [Unknown]
  - Fatigue [Not Recovered/Not Resolved]
  - Decreased appetite [Unknown]
  - Asthenia [Unknown]
  - Heart rate increased [Unknown]
  - Dyspnoea exertional [Unknown]
  - Feeling hot [Unknown]
